FAERS Safety Report 17442224 (Version 2)
Quarter: 2021Q2

REPORT INFORMATION
  Report Type: Report from Study
  Country: US (occurrence: US)
  Receive Date: 20200220
  Receipt Date: 20210507
  Transmission Date: 20210716
  Serious: Yes (Other)
  Sender: FDA-Public Use
  Company Number: NVSC2020US033079

PATIENT
  Age: 16 Year
  Sex: Male

DRUGS (1)
  1. PIQRAY [Suspect]
     Active Substance: ALPELISIB
     Indication: PIK3CA RELATED OVERGROWTH SPECTRUM
     Dosage: 50 MG
     Route: 048
     Dates: start: 20190918, end: 20191229

REACTIONS (2)
  - Pyrexia [Unknown]
  - Pneumonia influenzal [Unknown]

NARRATIVE: CASE EVENT DATE: 20191212
